FAERS Safety Report 4412787-2 (Version None)
Quarter: 2004Q3

REPORT INFORMATION
  Report Type: 
  Country: None (occurrence: None)
  Receive Date: 20040730
  Receipt Date: 20040730
  Transmission Date: 20050211
  Serious: Yes (Other)
  Sender: FDA-Public Use
  Company Number: None

PATIENT
  Sex: Female
  Weight: 78.0187 kg

DRUGS (2)
  1. CEPHALEXIN [Suspect]
     Indication: URINARY TRACT INFECTION
     Dosage: 500 MG 4X/DAY
     Dates: start: 20040616, end: 20040620
  2. SUPER VITAMIN NUTRITIONAL PRENATAL VITAMINS [Concomitant]

REACTIONS (5)
  - ABORTION SPONTANEOUS [None]
  - DIARRHOEA [None]
  - DRUG EXPOSURE DURING PREGNANCY [None]
  - MALAISE [None]
  - SWOLLEN TONGUE [None]
